FAERS Safety Report 13026414 (Version 1)
Quarter: 2016Q4

REPORT INFORMATION
  Report Type: Spontaneous
  Country: US (occurrence: US)
  Receive Date: 20161214
  Receipt Date: 20161214
  Transmission Date: 20170207
  Serious: No
  Sender: FDA-Public Use
  Company Number: ALCN2016US008532

PATIENT
  Sex: Female

DRUGS (3)
  1. PREDNISOLONE SCHEIN [Suspect]
     Active Substance: PREDNISOLONE
     Indication: EYE INFLAMMATION
  2. PREDNISOLONE SCHEIN [Suspect]
     Active Substance: PREDNISOLONE
     Indication: DIABETIC RETINAL OEDEMA
     Dosage: 1 GTT, QID
     Route: 047
     Dates: start: 20161121, end: 20161207
  3. INSULIN [Concomitant]
     Active Substance: INSULIN NOS
     Indication: DIABETES MELLITUS
     Dosage: (PUMP)
     Route: 065

REACTIONS (1)
  - Blood glucose increased [Recovering/Resolving]

NARRATIVE: CASE EVENT DATE: 201611
